FAERS Safety Report 9809162 (Version 1)
Quarter: 2014Q1

REPORT INFORMATION
  Report Type: Spontaneous
  Country: US (occurrence: US)
  Receive Date: 20140110
  Receipt Date: 20140110
  Transmission Date: 20141002
  Serious: Yes (Other)
  Sender: FDA-Public Use
  Company Number: PHEH2014US000644

PATIENT
  Sex: Male

DRUGS (2)
  1. DIOVAN [Suspect]
     Dosage: UNK UKN, UNK
  2. FLOMAX//TAMSULOSIN HYDROCHLORIDE [Concomitant]

REACTIONS (3)
  - Blindness [Unknown]
  - Optic nerve injury [Unknown]
  - Eye disorder [Unknown]
